FAERS Safety Report 11925521 (Version 1)
Quarter: 2016Q1

REPORT INFORMATION
  Report Type: Spontaneous
  Country: US (occurrence: US)
  Receive Date: 20160118
  Receipt Date: 20160118
  Transmission Date: 20160526
  Serious: Yes (Other)
  Sender: FDA-Public Use
  Company Number: US-BAYER-2016-007132

PATIENT
  Age: 69 Year
  Sex: Female
  Weight: 47.62 kg

DRUGS (4)
  1. AFRIN ORIGINAL [Suspect]
     Active Substance: OXYMETAZOLINE HYDROCHLORIDE
     Indication: NASOPHARYNGITIS
  2. MIRABEGRON [Concomitant]
     Active Substance: MIRABEGRON
  3. SINGULAIR [Concomitant]
     Active Substance: MONTELUKAST SODIUM
  4. AFRIN ORIGINAL [Suspect]
     Active Substance: OXYMETAZOLINE HYDROCHLORIDE
     Indication: NASAL CONGESTION
     Dosage: 1 DF, BID
     Route: 045
     Dates: start: 1973

REACTIONS (4)
  - Wrong technique in product usage process [None]
  - Product use issue [Not Recovered/Not Resolved]
  - Drug abuser [Not Recovered/Not Resolved]
  - Scar [None]
